FAERS Safety Report 7418367-9 (Version None)
Quarter: 2011Q2

REPORT INFORMATION
  Report Type: 
  Country: None (occurrence: None)
  Receive Date: 20110407
  Receipt Date: 20110209
  Transmission Date: 20111010
  Serious: Yes (Hospitalization, Other)
  Sender: FDA-Public Use
  Company Number: 2011SP007639

PATIENT
  Age: 7 Year
  Sex: Female

DRUGS (7)
  1. TACROLIMUS [Concomitant]
  2. PREDNISONE [Suspect]
     Indication: IMMUNOSUPPRESSION
     Dosage: PO ; 5 MG;QD ; 60 MG;QD;PO ; 5 MG ; 60 MG;QD
     Route: 048
  3. BASILIXIMAB [Concomitant]
  4. METHYLPREDNISOLONE SODIUM SUCCINATE [Suspect]
     Indication: IMMUNOSUPPRESSION
     Dosage: IV ; 500 MG;TID
     Route: 042
  5. CYCLOPHOSPHAMIDE [Concomitant]
  6. TACROLIMUS [Concomitant]
  7. MYCOPHENOLATE MOFETIL [Concomitant]

REACTIONS (12)
  - VISUAL ACUITY REDUCED [None]
  - CUSHINGOID [None]
  - CONVULSION [None]
  - BLOOD CREATININE INCREASED [None]
  - RENAL IMPAIRMENT [None]
  - CANDIDIASIS [None]
  - ARTHRALGIA [None]
  - HISTOPLASMOSIS [None]
  - HYPERTENSION [None]
  - CONDITION AGGRAVATED [None]
  - MULTI-ORGAN FAILURE [None]
  - KIDNEY TRANSPLANT REJECTION [None]
